FAERS Safety Report 9212519 (Version 1)
Quarter: 2013Q2

REPORT INFORMATION
  Report Type: Spontaneous
  Country: US (occurrence: US)
  Receive Date: 20130405
  Receipt Date: 20130405
  Transmission Date: 20140414
  Serious: No
  Sender: FDA-Public Use
  Company Number: US-009507513-1304USA000717

PATIENT
  Age: 35 Year
  Sex: Female

DRUGS (2)
  1. SAPHRIS [Suspect]
     Dosage: 10 MG, BID
     Route: 060
  2. SAPHRIS [Suspect]
     Dosage: 10 MG, TID
     Route: 060

REACTIONS (4)
  - Drug ineffective [Unknown]
  - Restlessness [Recovered/Resolved]
  - Akathisia [Recovered/Resolved]
  - Inappropriate schedule of drug administration [Unknown]
